FAERS Safety Report 22136709 (Version 2)
Quarter: 2023Q1

REPORT INFORMATION
  Report Type: Spontaneous
  Country: BR (occurrence: BR)
  Receive Date: 20230324
  Receipt Date: 20230330
  Transmission Date: 20230418
  Serious: Yes (Life-Threatening, Hospitalization, Other)
  Sender: FDA-Public Use
  Company Number: BR-MYLANLABS-2023M1031002

PATIENT
  Age: 25 Year
  Sex: Female
  Weight: 63 kg

DRUGS (5)
  1. LYRICA [Interacting]
     Active Substance: PREGABALIN
     Indication: Fibromyalgia
     Dosage: 150 MILLIGRAM, QD
     Route: 048
     Dates: start: 202303, end: 20230314
  2. FENTANYL [Interacting]
     Active Substance: FENTANYL
     Indication: Fibromyalgia
     Dosage: UNK
     Route: 065
  3. METHADONE [Interacting]
     Active Substance: METHADONE HYDROCHLORIDE
     Indication: Fibromyalgia
     Dosage: UNK
     Route: 065
  4. VENLAFAXINE HYDROCHLORIDE [Concomitant]
     Active Substance: VENLAFAXINE HYDROCHLORIDE
     Indication: Depression
     Dosage: 150 MILLIGRAM, QD
     Route: 048
  5. RIVOTRIL [Concomitant]
     Active Substance: CLONAZEPAM
     Indication: Anxiety
     Dosage: 15 GTT DROPS (15 GTT DROPS, PRN)
     Route: 048

REACTIONS (14)
  - Cyanosis [Recovered/Resolved]
  - Pallor [Recovered/Resolved]
  - Drug interaction [Recovered/Resolved]
  - Snoring [Recovered/Resolved]
  - Loss of consciousness [Recovered/Resolved]
  - Dyspnoea [Recovered/Resolved]
  - Near death experience [Recovered/Resolved]
  - Coma [Recovered/Resolved]
  - Migraine [Recovered/Resolved]
  - Tension [Recovered/Resolved]
  - Malaise [Recovered/Resolved]
  - Nausea [Recovered/Resolved]
  - Somnolence [Recovered/Resolved]
  - Pain [Recovered/Resolved]

NARRATIVE: CASE EVENT DATE: 20230301
